FAERS Safety Report 6022038-3 (Version None)
Quarter: 2008Q4

REPORT INFORMATION
  Report Type: 
  Country: None (occurrence: None)
  Receive Date: 20081229
  Receipt Date: 20081223
  Transmission Date: 20090506
  Serious: Yes (Death)
  Sender: FDA-Public Use
  Company Number: US-ASTRAZENECA-2008AC03246

PATIENT
  Age: 12 Year
  Sex: Female

DRUGS (5)
  1. QUETIAPINE [Suspect]
     Route: 048
  2. METHADON HCL TAB [Suspect]
     Route: 048
  3. DOXYLAMINE [Suspect]
     Route: 048
  4. PAROXETINE HCL [Suspect]
     Route: 048
  5. AMANTADINE HCL [Suspect]
     Route: 048

REACTIONS (4)
  - BRAIN OEDEMA [None]
  - CARDIO-RESPIRATORY ARREST [None]
  - DRUG TOXICITY [None]
  - INTENTIONAL DRUG MISUSE [None]
